FAERS Safety Report 9137128 (Version 1)
Quarter: 2013Q1

REPORT INFORMATION
  Report Type: Spontaneous
  Country: US (occurrence: US)
  Receive Date: 20130219
  Receipt Date: 20130219
  Transmission Date: 20140127
  Serious: No
  Sender: FDA-Public Use
  Company Number: US-BRISTOL-MYERS SQUIBB COMPANY-16807430

PATIENT
  Age: 66 Year
  Sex: Female

DRUGS (6)
  1. ABATACEPT SUBQ INJECTION 125MG/ML [Suspect]
     Indication: RHEUMATOID ARTHRITIS
     Dosage: NO OF INF:1
     Route: 058
     Dates: start: 20120724
  2. CELEBREX [Concomitant]
  3. LISINOPRIL [Concomitant]
  4. AZULFIDINE [Concomitant]
     Dosage: TAB
  5. OMEPRAZOLE [Concomitant]
  6. VICODIN [Concomitant]
     Dosage: BID,1DF=5-500 UNS

REACTIONS (1)
  - Rheumatoid arthritis [Recovering/Resolving]
